FAERS Safety Report 21949331 (Version 1)
Quarter: 2023Q1

REPORT INFORMATION
  Report Type: Spontaneous
  Country: US (occurrence: None)
  Receive Date: 20230202
  Receipt Date: 20230202
  Transmission Date: 20230417
  Serious: No
  Sender: FDA-Public Use
  Company Number: None

PATIENT
  Sex: Female
  Weight: 75.75 kg

DRUGS (13)
  1. CAPECITABINE [Suspect]
     Active Substance: CAPECITABINE
     Dosage: FREQUENCY : TWICE A DAY;?OTHER ROUTE : ORAL 7 DAYS ON, 7D OFF;?
     Route: 050
  2. ALPRAZOLAM [Concomitant]
  3. ATENOLOL [Concomitant]
     Active Substance: ATENOLOL
  4. ENALAPRIL [Concomitant]
     Active Substance: ENALAPRIL
  5. Fenofibrate and Derivates [Concomitant]
  6. FERROUS SULFATE [Concomitant]
     Active Substance: FERROUS SULFATE
  7. GABAPENTIN [Concomitant]
  8. HYDROCHLOROTHIAZIDE [Concomitant]
     Active Substance: HYDROCHLOROTHIAZIDE
  9. LETROZOLE [Concomitant]
     Active Substance: LETROZOLE
  10. METFORMIN [Concomitant]
     Active Substance: METFORMIN HYDROCHLORIDE
  11. PAROXETINE [Concomitant]
     Active Substance: PAROXETINE
  12. WARFARIN [Concomitant]
     Active Substance: WARFARIN
  13. ZOCOR [Concomitant]
     Active Substance: SIMVASTATIN

REACTIONS (1)
  - Malignant neoplasm progression [None]
